FAERS Safety Report 8849337 (Version 1)
Quarter: 2012Q4

REPORT INFORMATION
  Report Type: Spontaneous
  Country: US (occurrence: None)
  Receive Date: 20121017
  Receipt Date: 20121017
  Transmission Date: 20130627
  Serious: Yes (Life-Threatening)
  Sender: FDA-Public Use
  Company Number: None

PATIENT
  Age: 57 Year
  Sex: Male
  Weight: 124.74 kg

DRUGS (2)
  1. DAYPRO [Suspect]
     Indication: ARTHRITIS
     Dosage: 1 caplet daily
     Route: 048
     Dates: start: 20120912, end: 20120914
  2. DAYPRO [Suspect]
     Indication: ARTHRITIS
     Dates: start: 20121013, end: 20121013

REACTIONS (14)
  - Swollen tongue [None]
  - Flushing [None]
  - Swelling face [None]
  - Feeling of body temperature change [None]
  - Throat tightness [None]
  - Panic reaction [None]
  - Oesophageal spasm [None]
  - Hypoaesthesia [None]
  - Hypoaesthesia oral [None]
  - Electrocardiogram abnormal [None]
  - Erythema [None]
  - Eating disorder [None]
  - Cardiac disorder [None]
  - Chest discomfort [None]
